FAERS Safety Report 18695532 (Version 1)
Quarter: 2021Q1

REPORT INFORMATION
  Report Type: Spontaneous
  Country: AU (occurrence: AU)
  Receive Date: 20210104
  Receipt Date: 20210104
  Transmission Date: 20210419
  Serious: Yes (Other)
  Sender: FDA-Public Use
  Company Number: AU-AMERICAN REGENT INC-2020002747

PATIENT
  Age: 42 Year
  Sex: Female

DRUGS (2)
  1. FERINJECT [Suspect]
     Active Substance: FERRIC CARBOXYMALTOSE
     Indication: BLOOD IRON DECREASED
     Dosage: UNK
     Dates: start: 20200129
  2. FERINJECT [Suspect]
     Active Substance: FERRIC CARBOXYMALTOSE
     Indication: SERUM FERRITIN DECREASED

REACTIONS (10)
  - Palpitations [Not Recovered/Not Resolved]
  - Chest pain [Recovering/Resolving]
  - Presyncope [Recovered/Resolved]
  - Cardiac flutter [Recovering/Resolving]
  - Constipation [Recovered/Resolved]
  - Vitamin D decreased [Recovered/Resolved]
  - Hypophosphataemia [Recovered/Resolved]
  - Diarrhoea [Recovered/Resolved]
  - Blood calcium decreased [Recovered/Resolved]
  - Heart rate increased [Recovered/Resolved]

NARRATIVE: CASE EVENT DATE: 2020
